FAERS Safety Report 11464313 (Version 1)
Quarter: 2015Q3

REPORT INFORMATION
  Report Type: Spontaneous
  Country: US (occurrence: US)
  Receive Date: 20150831
  Receipt Date: 20150831
  Transmission Date: 20151125
  Serious: No
  Sender: FDA-Public Use
  Company Number: US-ELI_LILLY_AND_COMPANY-US201108000367

PATIENT
  Sex: Male

DRUGS (2)
  1. LUNESTA [Concomitant]
     Active Substance: ESZOPICLONE
  2. CYMBALTA [Suspect]
     Active Substance: DULOXETINE HYDROCHLORIDE
     Indication: DEPRESSION
     Dosage: UNK
     Dates: end: 201107

REACTIONS (8)
  - Hallucination [Recovering/Resolving]
  - Drug effect incomplete [Recovered/Resolved]
  - Thinking abnormal [Unknown]
  - Delusion [Unknown]
  - Depressed mood [Unknown]
  - Restlessness [Unknown]
  - Insomnia [Unknown]
  - Hyperhidrosis [Unknown]
